FAERS Safety Report 7315267-X (Version None)
Quarter: 2011Q1

REPORT INFORMATION
  Report Type: 
  Country: None (occurrence: None)
  Receive Date: 20110225
  Receipt Date: 20110217
  Transmission Date: 20110831
  Serious: Yes (Other)
  Sender: FDA-Public Use
  Company Number: DE-ROCHE-760997

PATIENT
  Age: 51 Year
  Sex: Male

DRUGS (2)
  1. PEGASYS [Suspect]
     Route: 065
     Dates: start: 20101217
  2. COPEGUS [Suspect]
     Route: 065
     Dates: start: 20101217

REACTIONS (2)
  - LARYNGITIS [None]
  - NEOPLASM [None]
